FAERS Safety Report 8349520-8 (Version None)
Quarter: 2012Q2

REPORT INFORMATION
  Report Type: 
  Country: None (occurrence: None)
  Receive Date: 20120508
  Receipt Date: 20120508
  Transmission Date: 20120825
  Serious: Yes (Hospitalization)
  Sender: FDA-Public Use
  Company Number: None

PATIENT
  Sex: Male
  Weight: 94 kg

DRUGS (7)
  1. CYCLOPHOSPHAMIDE [Suspect]
     Dosage: 1314 MG
     Dates: end: 20120222
  2. FLUDARABINE PHOSPHATE [Suspect]
     Dosage: 123 MG
     Dates: end: 20120222
  3. RITUXIMAB (MOAB C2B8 ANTI CD20, CHIMERIC) [Suspect]
     Dosage: 1095 MG
     Dates: end: 20120220
  4. BACTRIM [Concomitant]
  5. NAPROSYN [Concomitant]
  6. ACYCLOVIR [Concomitant]
  7. RANITIDINE [Concomitant]

REACTIONS (12)
  - PYREXIA [None]
  - PAIN [None]
  - SINUS HEADACHE [None]
  - PNEUMONIA [None]
  - BLOOD CULTURE POSITIVE [None]
  - CHILLS [None]
  - DYSPNOEA [None]
  - NEUTROPENIA [None]
  - OROPHARYNGEAL PAIN [None]
  - STAPHYLOCOCCAL INFECTION [None]
  - COUGH [None]
  - ANAEMIA [None]
